FAERS Safety Report 17238017 (Version 1)
Quarter: 2020Q1

REPORT INFORMATION
  Report Type: Spontaneous
  Country: US (occurrence: US)
  Receive Date: 20200106
  Receipt Date: 20200106
  Transmission Date: 20200409
  Serious: No
  Sender: FDA-Public Use
  Company Number: US-PACIRA-201900088

PATIENT
  Sex: Female

DRUGS (2)
  1. MARCAINE [Concomitant]
     Active Substance: BUPIVACAINE HYDROCHLORIDE
     Indication: PRODUCT USED FOR UNKNOWN INDICATION
     Dosage: 0.5% INTRAABDOMINA?
  2. EXPAREL [Suspect]
     Active Substance: BUPIVACAINE
     Indication: NERVE BLOCK
     Dosage: 2- 266 MG VIALS, TOTAL DOSE OF 532 MG. 1 VIAL USED FOR TAP AND 1- VIAL USED FOR LOCAL INFILTRATION
     Dates: start: 20190328

REACTIONS (3)
  - Off label use [Recovered/Resolved]
  - Extra dose administered [Recovered/Resolved]
  - No adverse event [Unknown]
